FAERS Safety Report 7974546-3 (Version None)
Quarter: 2011Q4

REPORT INFORMATION
  Report Type: 
  Country: None (occurrence: None)
  Receive Date: 20111213
  Receipt Date: 20111202
  Transmission Date: 20120403
  Serious: Yes (Other)
  Sender: FDA-Public Use
  Company Number: FR-JNJFOC-20111202124

PATIENT
  Age: 10 Year
  Sex: Male
  Weight: 34.2 kg

DRUGS (6)
  1. REMICADE [Suspect]
     Route: 042
     Dates: start: 20110101
  2. HYDROCORTISONE [Concomitant]
     Indication: PREMEDICATION
     Dates: start: 20111103
  3. REMICADE [Suspect]
     Route: 042
     Dates: start: 20110908
  4. REMICADE [Suspect]
     Indication: INFLAMMATORY BOWEL DISEASE
     Route: 042
     Dates: start: 20111103
  5. REMICADE [Suspect]
     Dosage: 5 MG/KG
     Route: 042
     Dates: start: 20110726
  6. POLARAMINE NOS [Concomitant]
     Indication: PREMEDICATION
     Dates: start: 20111103

REACTIONS (6)
  - INFUSION RELATED REACTION [None]
  - RESPIRATORY DISORDER [None]
  - RASH [None]
  - OXYGEN SATURATION DECREASED [None]
  - VOMITING [None]
  - DRUG INEFFECTIVE [None]
